FAERS Safety Report 24152015 (Version 1)
Quarter: 2024Q3

REPORT INFORMATION
  Report Type: Spontaneous
  Country: US (occurrence: US)
  Receive Date: 20240730
  Receipt Date: 20240730
  Transmission Date: 20241017
  Serious: No
  Sender: ROCHE
  Company Number: US-ROCHE-10000041749

PATIENT
  Sex: Female

DRUGS (13)
  1. XELODA [Suspect]
     Active Substance: CAPECITABINE
     Indication: Product used for unknown indication
     Dosage: 1000 MG TWICE ADAY FOR 14 DAYS ON AND 7 OFF
     Route: 065
  2. HERCEPTIN [Suspect]
     Active Substance: TRASTUZUMAB
     Indication: Product used for unknown indication
     Route: 058
  3. TUKYSA [Suspect]
     Active Substance: TUCATINIB
     Indication: Product used for unknown indication
     Route: 065
     Dates: start: 20240701
  4. DEXAMETHASONE [Suspect]
     Active Substance: DEXAMETHASONE
     Indication: Product used for unknown indication
     Route: 048
  5. ACETYLCARNITINE [Concomitant]
     Active Substance: ACETYLCARNITINE
  6. ALEVE [Concomitant]
     Active Substance: NAPROXEN SODIUM
  7. ASPIRIN [Concomitant]
     Active Substance: ASPIRIN
  8. CALCIUM [Concomitant]
     Active Substance: CALCIUM
  9. FLAXSEED [Concomitant]
     Active Substance: FLAX SEED
  10. GABAPENTIN [Concomitant]
     Active Substance: GABAPENTIN
  11. TRELEGY ELLIPTA [Concomitant]
     Active Substance: FLUTICASONE FUROATE\UMECLIDINIUM BROMIDE\VILANTEROL TRIFENATATE
  12. VALACYCLOVIR [Concomitant]
     Active Substance: VALACYCLOVIR HYDROCHLORIDE
  13. XANAX [Concomitant]
     Active Substance: ALPRAZOLAM

REACTIONS (1)
  - Urticaria [Not Recovered/Not Resolved]

NARRATIVE: CASE EVENT DATE: 20240719
